FAERS Safety Report 9853537 (Version 1)
Quarter: 2014Q1

REPORT INFORMATION
  Report Type: Spontaneous
  Country: IN (occurrence: IN)
  Receive Date: 20140129
  Receipt Date: 20140129
  Transmission Date: 20141002
  Serious: Yes (Other)
  Sender: FDA-Public Use
  Company Number: IN-ACTAVIS-2014-00758

PATIENT
  Age: 72 Year
  Sex: Male

DRUGS (1)
  1. PACLITAXEL (UNKNOWN) [Suspect]
     Indication: CORONARY ARTERY RESTENOSIS
     Dosage: UNK
     Route: 016

REACTIONS (1)
  - Vascular pseudoaneurysm [Recovered/Resolved]
